FAERS Safety Report 5980074-7 (Version None)
Quarter: 2008Q4

REPORT INFORMATION
  Report Type: 
  Country: None (occurrence: None)
  Receive Date: 20081128
  Receipt Date: 20081117
  Transmission Date: 20090506
  Serious: Yes (Death, Hospitalization)
  Sender: FDA-Public Use
  Company Number: 2008AL011825

PATIENT
  Age: 5 Year
  Sex: Female

DRUGS (4)
  1. DEXAMETHASONE [Suspect]
     Dosage: 12 MG/ M**2;QD;PO
     Route: 048
  2. VINCRISTINE [Concomitant]
  3. ELSPAR [Concomitant]
  4. METHOTREXATE [Concomitant]

REACTIONS (19)
  - ABDOMINAL DISTENSION [None]
  - ABDOMINAL PAIN UPPER [None]
  - ASCITES [None]
  - BLOOD LACTATE DEHYDROGENASE DECREASED [None]
  - DEPRESSED LEVEL OF CONSCIOUSNESS [None]
  - DISSEMINATED INTRAVASCULAR COAGULATION [None]
  - FATIGUE [None]
  - HAEMOGLOBIN DECREASED [None]
  - HEART RATE INCREASED [None]
  - HEPATIC HAEMORRHAGE [None]
  - HEPATIC NECROSIS [None]
  - HEPATOMEGALY [None]
  - LIVER PALPABLE SUBCOSTAL [None]
  - PERICARDIAL EFFUSION [None]
  - PLEURAL EFFUSION [None]
  - POLYMERASE CHAIN REACTION [None]
  - PROTHROMBIN TIME PROLONGED [None]
  - RESPIRATORY RATE INCREASED [None]
  - VARICELLA ZOSTER VIRUS SEROLOGY POSITIVE [None]
